FAERS Safety Report 22540206 (Version 1)
Quarter: 2023Q2

REPORT INFORMATION
  Report Type: Spontaneous
  Country: US (occurrence: US)
  Receive Date: 20230609
  Receipt Date: 20230609
  Transmission Date: 20230722
  Serious: No
  Sender: FDA-Public Use
  Company Number: US-SANOFI-01641464

PATIENT
  Age: 44 Year
  Sex: Male

DRUGS (3)
  1. TOUJEO [Suspect]
     Active Substance: INSULIN GLARGINE
     Dosage: UNK
     Route: 065
     Dates: start: 202212, end: 202301
  2. TOUJEO [Suspect]
     Active Substance: INSULIN GLARGINE
     Dosage: 64 IU
     Route: 065
     Dates: start: 202306
  3. TOUJEO [Suspect]
     Active Substance: INSULIN GLARGINE
     Dosage: 10 IU
     Route: 065
     Dates: start: 202306

REACTIONS (4)
  - Muscular weakness [Unknown]
  - Hypotonia [Unknown]
  - Myalgia [Unknown]
  - Blood glucose decreased [Unknown]
